FAERS Safety Report 8177286-3 (Version None)
Quarter: 2012Q1

REPORT INFORMATION
  Report Type: 
  Country: None (occurrence: None)
  Receive Date: 20120301
  Receipt Date: 20120228
  Transmission Date: 20120608
  Serious: Yes (Hospitalization)
  Sender: FDA-Public Use
  Company Number: FR-ROCHE-1044397

PATIENT
  Age: 78 Year
  Sex: Female

DRUGS (1)
  1. AVASTIN [Suspect]
     Indication: GLIOBLASTOMA
     Dates: end: 20110606

REACTIONS (2)
  - CONFUSIONAL STATE [None]
  - ISCHAEMIC STROKE [None]
